FAERS Safety Report 6645985-8 (Version None)
Quarter: 2010Q1

REPORT INFORMATION
  Report Type: 
  Country: None (occurrence: None)
  Receive Date: 20100323
  Receipt Date: 20100316
  Transmission Date: 20100710
  Serious: Yes (Life-Threatening, Hospitalization)
  Sender: FDA-Public Use
  Company Number: DE-SANOFI-AVENTIS-2009SA005333

PATIENT
  Age: 67 Year
  Sex: Male

DRUGS (4)
  1. DOCETAXEL [Suspect]
     Route: 051
     Dates: start: 20090701, end: 20090701
  2. DOCETAXEL [Suspect]
     Route: 051
     Dates: start: 20090901, end: 20090901
  3. TRASTUZUMAB [Concomitant]
     Route: 051
     Dates: start: 20090701, end: 20090701
  4. TRASTUZUMAB [Concomitant]
     Route: 051
     Dates: start: 20090901, end: 20090901

REACTIONS (1)
  - ALVEOLITIS ALLERGIC [None]
